FAERS Safety Report 15586822 (Version 1)
Quarter: 2018Q4

REPORT INFORMATION
  Report Type: Spontaneous
  Country: DE (occurrence: DE)
  Receive Date: 20181105
  Receipt Date: 20181105
  Transmission Date: 20190205
  Serious: Yes (Hospitalization)
  Sender: FDA-Public Use
  Company Number: DE-TESARO-2018-TSO1558-DE

PATIENT

DRUGS (2)
  1. ISOPROLOL [Concomitant]
     Indication: BLOOD PRESSURE MEASUREMENT
     Dosage: 5 MG, UNK
  2. ZEJULA [Suspect]
     Active Substance: NIRAPARIB
     Indication: OVARIAN CANCER
     Dosage: 3 CAPSULES IN THE EVENING BEFORE BED
     Route: 048
     Dates: start: 201801, end: 20181031

REACTIONS (7)
  - Visual impairment [Unknown]
  - Cerebrovascular accident [Unknown]
  - Monoparesis [Unknown]
  - Dizziness [Unknown]
  - Confusional state [Not Recovered/Not Resolved]
  - Headache [Unknown]
  - Dysstasia [Unknown]

NARRATIVE: CASE EVENT DATE: 20181024
